FAERS Safety Report 8263283 (Version 2)
Quarter: 2014Q1

REPORT INFORMATION
  Report Type: Spontaneous
  Country: US (occurrence: US)
  Receive Date: 20111125
  Receipt Date: 20140227
  Transmission Date: 20141002
  Serious: No
  Sender: FDA-Public Use
  Company Number: US-PFIZER INC-2011286487

PATIENT
  Sex: Female

DRUGS (1)
  1. ACCURETIC [Suspect]
     Dosage: 20 MG/12.5 MG, 2X/DAY

REACTIONS (1)
  - Hypertension [Unknown]
